FAERS Safety Report 6354612-9 (Version None)
Quarter: 2009Q3

REPORT INFORMATION
  Report Type: 
  Country: None (occurrence: None)
  Receive Date: 20090914
  Receipt Date: 20090909
  Transmission Date: 20100115
  Serious: Yes (Death, Hospitalization, Disabling)
  Sender: FDA-Public Use
  Company Number: AT-CELGENEUS-009-21880-09090601

PATIENT
  Sex: Female
  Weight: 62 kg

DRUGS (1)
  1. REVLIMID [Suspect]
     Dates: start: 20080403, end: 20080418

REACTIONS (4)
  - COUGH [None]
  - INFECTION [None]
  - LEUKOPENIA [None]
  - POLYNEUROPATHY [None]
